FAERS Safety Report 9230542 (Version 1)
Quarter: 2013Q2

REPORT INFORMATION
  Report Type: Spontaneous
  Country: US (occurrence: US)
  Receive Date: 20130415
  Receipt Date: 20130415
  Transmission Date: 20140414
  Serious: Yes (Life-Threatening, Hospitalization)
  Sender: FDA-Public Use
  Company Number: US-ASTRAZENECA-2013SE24468

PATIENT
  Age: 21572 Day
  Sex: 0
  Weight: 81.6 kg

DRUGS (7)
  1. CRESTOR [Suspect]
     Route: 048
     Dates: start: 2009
  2. VIBRYD [Concomitant]
  3. TRAZADONE [Concomitant]
  4. GABAPENTIN [Concomitant]
  5. LAMICTAL [Concomitant]
  6. ESTROGEN [Concomitant]
  7. LEVOTHYROXINE [Concomitant]

REACTIONS (4)
  - Hepatotoxicity [Unknown]
  - Renal failure [Unknown]
  - Muscle injury [Unknown]
  - Blood creatine phosphokinase increased [Unknown]
